FAERS Safety Report 22112226 (Version 1)
Quarter: 2023Q1

REPORT INFORMATION
  Report Type: Spontaneous
  Country: US (occurrence: US)
  Receive Date: 20230318
  Receipt Date: 20230318
  Transmission Date: 20230418
  Serious: Yes (Other)
  Sender: FDA-Public Use
  Company Number: US-AMGEN-USASP2023044042

PATIENT
  Age: 76 Year
  Sex: Female

DRUGS (1)
  1. PROLIA [Suspect]
     Active Substance: DENOSUMAB
     Indication: Osteoporosis
     Dosage: 60 MILLIGRAM, Q6MO
     Route: 058

REACTIONS (5)
  - Cerebrovascular accident [Unknown]
  - Foot fracture [Recovered/Resolved]
  - Spinal operation [Unknown]
  - Impaired healing [Unknown]
  - Dental caries [Unknown]

NARRATIVE: CASE EVENT DATE: 20221001
